FAERS Safety Report 7119580-0 (Version None)
Quarter: 2010Q4

REPORT INFORMATION
  Report Type: 
  Country: None (occurrence: None)
  Receive Date: 20101115
  Receipt Date: 20101105
  Transmission Date: 20110411
  Serious: Yes (Life-Threatening, Hospitalization)
  Sender: FDA-Public Use
  Company Number: 2010MA004341

PATIENT
  Age: 48 Year
  Sex: Female

DRUGS (4)
  1. CITALOPRAM HYDROBROMIDE [Suspect]
     Dosage: 20 MG;BID;PO
     Route: 048
  2. OLANZAPINE [Suspect]
     Dosage: 5 MG;QD;PO
     Route: 048
  3. ZOPICLONE (ZOPICLONE) [Suspect]
     Dosage: 3.75 MG
  4. DIAZEPAM [Suspect]
     Dosage: 2 MG;QD

REACTIONS (2)
  - RESPIRATORY ARREST [None]
  - SYNCOPE [None]
